FAERS Safety Report 21516841 (Version 7)
Quarter: 2025Q1

REPORT INFORMATION
  Report Type: Report from Study
  Country: DE (occurrence: DE)
  Receive Date: 20221028
  Receipt Date: 20250101
  Transmission Date: 20250408
  Serious: No
  Sender: ROCHE
  Company Number: DE-ROCHE-3016491

PATIENT
  Age: 48 Year
  Sex: Male

DRUGS (3)
  1. OCREVUS [Suspect]
     Active Substance: OCRELIZUMAB
     Indication: Secondary progressive multiple sclerosis
     Dosage: SUBSEQUENT DOSE 600 MG
     Route: 042
     Dates: start: 20220107
  2. OCREVUS [Suspect]
     Active Substance: OCRELIZUMAB
     Route: 042
     Dates: start: 20220607
  3. VITAMIN D3 [Concomitant]
     Active Substance: CHOLECALCIFEROL

REACTIONS (10)
  - Asthenia [Recovered/Resolved]
  - Urinary incontinence [Recovering/Resolving]
  - Gait disturbance [Recovering/Resolving]
  - Chills [Recovered/Resolved]
  - Neurodermatitis [Not Recovered/Not Resolved]
  - Onychomycosis [Recovering/Resolving]
  - Drug ineffective [Unknown]
  - Eczema infected [Recovering/Resolving]
  - Malaise [Recovered/Resolved]
  - Dizziness [Recovered/Resolved]

NARRATIVE: CASE EVENT DATE: 20220130
